FAERS Safety Report 6861162-X (Version None)
Quarter: 2010Q3

REPORT INFORMATION
  Report Type: 
  Country: None (occurrence: None)
  Receive Date: 20100720
  Receipt Date: 20100719
  Transmission Date: 20110219
  Serious: Yes (Hospitalization, Other)
  Sender: FDA-Public Use
  Company Number: AU-ROXANE LABORATORIES, INC.-2010-RO-00860RO

PATIENT
  Age: 59 Year
  Sex: Male
  Weight: 105 kg

DRUGS (9)
  1. DIGOXIN [Suspect]
     Indication: CARDIAC FAILURE
     Dosage: 125 MCG
  2. FUROSEMIDE [Suspect]
     Dosage: 160 MG
  3. PERINDOPRIL ERBUMINE [Suspect]
     Dosage: 5 MG
  4. CARVEDILOL [Suspect]
  5. SPIRONOLACTONE [Suspect]
     Dosage: 12.5 MG
  6. ASPIRIN [Suspect]
     Dosage: 100 MG
  7. WARFARIN SODIUM [Suspect]
     Dosage: 6.5 MG
  8. MIXTARD HUMAN 70/30 [Suspect]
  9. DARBEPOETIN [Suspect]
     Route: 058

REACTIONS (3)
  - BLOOD CREATININE INCREASED [None]
  - HYPERKALAEMIA [None]
  - THERAPEUTIC AGENT TOXICITY [None]
